FAERS Safety Report 19478695 (Version 1)
Quarter: 2021Q2

REPORT INFORMATION
  Report Type: Spontaneous
  Country: US (occurrence: US)
  Receive Date: 20210630
  Receipt Date: 20210630
  Transmission Date: 20210717
  Serious: Yes (Other)
  Sender: FDA-Public Use
  Company Number: US-NOVOPROD-825074

PATIENT
  Sex: Male

DRUGS (1)
  1. NORDITROPIN [Suspect]
     Active Substance: SOMATROPIN
     Indication: PRODUCT USED FOR UNKNOWN INDICATION
     Dosage: UNK
     Route: 058

REACTIONS (7)
  - Hip surgery [Unknown]
  - Shoulder operation [Unknown]
  - Bone pain [Unknown]
  - Joint injury [Unknown]
  - Back pain [Unknown]
  - Muscle disorder [Unknown]
  - Knee deformity [Unknown]

NARRATIVE: CASE EVENT DATE: 2017
